FAERS Safety Report 23729482 (Version 2)
Quarter: 2024Q2

REPORT INFORMATION
  Report Type: Spontaneous
  Country: US (occurrence: US)
  Receive Date: 20240410
  Receipt Date: 20240618
  Transmission Date: 20240715
  Serious: No
  Sender: FDA-Public Use
  Company Number: US-INCYTE CORPORATION-2024IN003520

PATIENT

DRUGS (4)
  1. JAKAFI [Suspect]
     Active Substance: RUXOLITINIB
     Indication: Polycythaemia vera
     Dosage: 5 MILLIGRAM, BID
     Route: 048
     Dates: start: 20240309
  2. JAKAFI [Suspect]
     Active Substance: RUXOLITINIB
     Dosage: 5 MILLIGRAM, BID
     Route: 048
     Dates: start: 20240309, end: 20240516
  3. BRUKINSA [Concomitant]
     Active Substance: ZANUBRUTINIB
     Indication: Product used for unknown indication
     Route: 065
  4. BRUKINSA [Concomitant]
     Active Substance: ZANUBRUTINIB
     Dosage: 80 MILLIGRAM
     Route: 065

REACTIONS (3)
  - Middle insomnia [Unknown]
  - Blood iron decreased [Unknown]
  - Anaemia [Unknown]
